FAERS Safety Report 21580337 (Version 1)
Quarter: 2022Q4

REPORT INFORMATION
  Report Type: Report from Study
  Country: BR (occurrence: BR)
  Receive Date: 20221110
  Receipt Date: 20221110
  Transmission Date: 20230113
  Serious: Yes (Other)
  Sender: FDA-Public Use
  Company Number: BR-CELLTRION INC.-2022BR018797

PATIENT

DRUGS (3)
  1. INFLIXIMAB [Suspect]
     Active Substance: INFLIXIMAB
     Indication: Crohn^s disease
     Dosage: 5 AMPOULES EVERY 8 WEEKS (ROA: ENDOVENOUS)
     Route: 042
  2. MESALAMINE [Suspect]
     Active Substance: MESALAMINE
     Indication: Crohn^s disease
  3. OSCAL D 500MG [Concomitant]
     Indication: Prophylaxis
     Dosage: 2 PILLS PER DAY
     Route: 048
     Dates: start: 202203

REACTIONS (4)
  - Infected fistula [Recovered/Resolved]
  - Fistula inflammation [Recovered/Resolved]
  - Maternal exposure during pregnancy [Unknown]
  - Intentional dose omission [Unknown]
